FAERS Safety Report 18389348 (Version 2)
Quarter: 2020Q4

REPORT INFORMATION
  Report Type: Report from Study
  Country: None (occurrence: US)
  Receive Date: 20201016
  Receipt Date: 20201225
  Transmission Date: 20210114
  Serious: Yes (Other)
  Sender: FDA-Public Use
  Company Number: US-ABBVIE-20K-163-3604885-00

PATIENT
  Sex: Female

DRUGS (5)
  1. NITROSTAT [Concomitant]
     Active Substance: NITROGLYCERIN
     Indication: PRODUCT USED FOR UNKNOWN INDICATION
     Route: 048
  2. SINEMET [Concomitant]
     Active Substance: CARBIDOPA\LEVODOPA
     Indication: PRODUCT USED FOR UNKNOWN INDICATION
     Dosage: 25-100MG
     Route: 048
  3. TRIHEXYPHENIDYL [Concomitant]
     Active Substance: TRIHEXYPHENIDYL
     Indication: PRODUCT USED FOR UNKNOWN INDICATION
     Dosage: 2MG/5ML
     Route: 048
  4. DUOPA [Suspect]
     Active Substance: CARBIDOPA\LEVODOPA
     Indication: PRODUCT USED FOR UNKNOWN INDICATION
     Route: 050
     Dates: start: 20200929, end: 202011
  5. DUOPA [Suspect]
     Active Substance: CARBIDOPA\LEVODOPA

REACTIONS (19)
  - Nerve injury [Unknown]
  - Stoma site induration [Not Recovered/Not Resolved]
  - Intestinal obstruction [Not Recovered/Not Resolved]
  - Embedded device [Unknown]
  - Infection [Not Recovered/Not Resolved]
  - Procedural complication [Unknown]
  - Candida infection [Recovered/Resolved]
  - Vulvovaginal mycotic infection [Recovered/Resolved]
  - Device breakage [Unknown]
  - Abdominal pain [Not Recovered/Not Resolved]
  - Gastritis fungal [Recovered/Resolved]
  - Medical device site bruise [Not Recovered/Not Resolved]
  - Stoma site pain [Not Recovered/Not Resolved]
  - Stoma site pain [Unknown]
  - Device dislocation [Unknown]
  - Abdominal distension [Not Recovered/Not Resolved]
  - Neuralgia [Unknown]
  - Faecaloma [Unknown]
  - Abdominal discomfort [Not Recovered/Not Resolved]

NARRATIVE: CASE EVENT DATE: 2020
